FAERS Safety Report 6805132-6 (Version None)
Quarter: 2010Q2

REPORT INFORMATION
  Report Type: 
  Country: None (occurrence: None)
  Receive Date: 20100628
  Receipt Date: 20070924
  Transmission Date: 20101027
  Serious: No
  Sender: FDA-Public Use
  Company Number: US-PFIZER INC-2007047800

PATIENT
  Sex: Male

DRUGS (13)
  1. XALATAN [Suspect]
     Indication: OPEN ANGLE GLAUCOMA
     Dosage: QHS: EVERY DAY
     Route: 047
     Dates: start: 20070108
  2. XALATAN [Suspect]
     Indication: GLAUCOMA TRAUMATIC
  3. BILBERRY [Concomitant]
  4. CITRACAL + D [Concomitant]
  5. VITAMIN C [Concomitant]
  6. VITAMIN E [Concomitant]
  7. GENERAL NUTRIENTS [Concomitant]
  8. VITAMIN A [Concomitant]
  9. PROSTATIN [Concomitant]
  10. STOOL SOFTENER [Concomitant]
  11. ALL OTHER THERAPEUTIC PRODUCTS [Concomitant]
  12. ANTIDIARRHOEAL MICROORGANISMS [Concomitant]
  13. ALPHA LIPOIC ACID [Concomitant]

REACTIONS (2)
  - DIZZINESS [None]
  - SLEEP DISORDER [None]
